FAERS Safety Report 6962833-7 (Version None)
Quarter: 2010Q3

REPORT INFORMATION
  Report Type: 
  Country: None (occurrence: None)
  Receive Date: 20100823
  Receipt Date: 20100607
  Transmission Date: 20110219
  Serious: No
  Sender: FDA-Public Use
  Company Number: 013376

PATIENT
  Age: 46 Year
  Sex: Female

DRUGS (4)
  1. CIMZIA [Suspect]
     Indication: CROHN'S DISEASE
     Dosage: (200 MG 1X/2 WEEKS SUBCUTANEOUS)
     Route: 058
     Dates: start: 20100514
  2. VITAMN B12 /0056201/ [Concomitant]
  3. FOLATE [Concomitant]
  4. PHENERGAN HCL [Concomitant]

REACTIONS (3)
  - ABDOMINAL PAIN UPPER [None]
  - FUNGAL INFECTION [None]
  - MALAISE [None]
